FAERS Safety Report 6662631-8 (Version None)
Quarter: 2010Q1

REPORT INFORMATION
  Report Type: 
  Country: None (occurrence: None)
  Receive Date: 20100329
  Receipt Date: 20100316
  Transmission Date: 20100710
  Serious: Yes (Other)
  Sender: FDA-Public Use
  Company Number: 2010AL001628

PATIENT
  Age: 22 Year
  Sex: Male

DRUGS (3)
  1. LIDOCAINE HYDROCHLORIDE ORAL TOPICAL SOLUTION USP, 2% (ALPHARMA) (LIDO [Suspect]
     Indication: TOOTH REPAIR
     Dosage: TOP
     Route: 061
     Dates: start: 20100223, end: 20100223
  2. ERYTHROMYCIN [Concomitant]
  3. ACETAMINOPHEN AND CODEINE PHOSPHATE [Concomitant]

REACTIONS (1)
  - LIP SWELLING [None]
